FAERS Safety Report 14893206 (Version 4)
Quarter: 2018Q2

REPORT INFORMATION
  Report Type: Spontaneous
  Country: GB (occurrence: IE)
  Receive Date: 20180514
  Receipt Date: 20180625
  Transmission Date: 20180711
  Serious: Yes (Other)
  Sender: FDA-Public Use
  Company Number: US-ASTRAZENECA-2018SE63204

PATIENT
  Age: 61 Year
  Sex: Female

DRUGS (1)
  1. NEXIUM CONTROL [Suspect]
     Active Substance: ESOMEPRAZOLE MAGNESIUM
     Route: 048

REACTIONS (2)
  - Myocardial infarction [Unknown]
  - Middle insomnia [Unknown]

NARRATIVE: CASE EVENT DATE: 2018
